FAERS Safety Report 4293449-1 (Version None)
Quarter: 2004Q1

REPORT INFORMATION
  Report Type: 
  Country: None (occurrence: None)
  Receive Date: 20040210
  Receipt Date: 20040128
  Transmission Date: 20041129
  Serious: Yes (Disabling)
  Sender: FDA-Public Use
  Company Number: 2004-DE-00549UP

PATIENT
  Age: 52 Year
  Sex: Female

DRUGS (2)
  1. MIRAPEXIN(PRAMIPEXOLE DIHYDROCHLORIDE) (TA) (PRAMIPEXOLE) [Suspect]
     Indication: PARKINSON'S DISEASE
     Dosage: 0.564 MG (0.188 MG, 3 IN 1 D) PO
     Route: 048
     Dates: start: 20000601, end: 20030801
  2. SINEMET [Concomitant]

REACTIONS (6)
  - CHEST PAIN [None]
  - DYSPNOEA EXACERBATED [None]
  - HYPOMANIA [None]
  - OEDEMA PERIPHERAL [None]
  - ORTHOPNOEA [None]
  - WEIGHT INCREASED [None]
